FAERS Safety Report 6355489-8 (Version None)
Quarter: 2009Q3

REPORT INFORMATION
  Report Type: 
  Country: None (occurrence: None)
  Receive Date: 20090910
  Receipt Date: 20090825
  Transmission Date: 20100115
  Serious: Yes (Death, Hospitalization)
  Sender: FDA-Public Use
  Company Number: 2009AL004002

PATIENT
  Age: 80 Year
  Sex: Male

DRUGS (2)
  1. DIGOXIN [Suspect]
     Indication: ATRIAL FIBRILLATION
     Dosage: PO
     Route: 048
     Dates: start: 20050201, end: 20070607
  2. PROTONIX [Concomitant]

REACTIONS (11)
  - ATRIAL FIBRILLATION [None]
  - ECONOMIC PROBLEM [None]
  - EMOTIONAL DISORDER [None]
  - GASTROINTESTINAL HAEMORRHAGE [None]
  - HAEMORRHAGE [None]
  - HEART RATE INCREASED [None]
  - HYPONATRAEMIA [None]
  - HYPOTENSION [None]
  - INJURY [None]
  - SURGERY [None]
  - UNEVALUABLE EVENT [None]
